FAERS Safety Report 6584402-3 (Version None)
Quarter: 2010Q1

REPORT INFORMATION
  Report Type: 
  Country: None (occurrence: None)
  Receive Date: 20100216
  Receipt Date: 20100120
  Transmission Date: 20100710
  Serious: No
  Sender: FDA-Public Use
  Company Number: US-ABBOTT-10P-163-0620651-00

PATIENT
  Sex: Male
  Weight: 81.72 kg

DRUGS (7)
  1. SIMCOR [Suspect]
     Indication: DRUG USE FOR UNKNOWN INDICATION
     Dates: start: 20100116
  2. PLAVIX [Concomitant]
     Indication: DRUG USE FOR UNKNOWN INDICATION
  3. ASPIRIN [Concomitant]
     Indication: DRUG USE FOR UNKNOWN INDICATION
  4. LISINOPRIL [Concomitant]
     Indication: DRUG USE FOR UNKNOWN INDICATION
  5. LUNESTA [Concomitant]
     Indication: DRUG USE FOR UNKNOWN INDICATION
  6. SYMBICORT [Concomitant]
     Indication: DRUG USE FOR UNKNOWN INDICATION
  7. PROAIR HFA [Concomitant]
     Indication: DRUG USE FOR UNKNOWN INDICATION

REACTIONS (2)
  - FAECES DISCOLOURED [None]
  - RECTAL HAEMORRHAGE [None]
